FAERS Safety Report 11815274 (Version 1)
Quarter: 2015Q4

REPORT INFORMATION
  Report Type: Spontaneous
  Country: US (occurrence: US)
  Receive Date: 20151209
  Receipt Date: 20151209
  Transmission Date: 20160305
  Serious: No
  Sender: FDA-Public Use
  Company Number: US-SA-2015SA190972

PATIENT
  Age: 59 Year
  Sex: Female

DRUGS (5)
  1. LANTUS [Concomitant]
     Active Substance: INSULIN GLARGINE
     Dates: end: 201506
  2. GLIPIZIDE. [Concomitant]
     Active Substance: GLIPIZIDE
  3. TOUJEO [Suspect]
     Active Substance: INSULIN GLARGINE
     Indication: TYPE 2 DIABETES MELLITUS
     Dosage: DOSE:84 UNIT(S)
     Route: 065
     Dates: start: 201506, end: 20151112
  4. SOLOSTAR [Concomitant]
     Active Substance: DEVICE
     Dates: start: 201506, end: 20151112
  5. METFORMIN [Concomitant]
     Active Substance: METFORMIN HYDROCHLORIDE

REACTIONS (7)
  - Hot flush [Unknown]
  - Gastrointestinal motility disorder [Unknown]
  - Balance disorder [Unknown]
  - Malaise [Unknown]
  - Dizziness [Unknown]
  - Nausea [Unknown]
  - Somnolence [Unknown]

NARRATIVE: CASE EVENT DATE: 20151112
